FAERS Safety Report 13269551 (Version 1)
Quarter: 2017Q1

REPORT INFORMATION
  Report Type: Spontaneous
  Country: SI (occurrence: SI)
  Receive Date: 20170224
  Receipt Date: 20170224
  Transmission Date: 20170428
  Serious: Yes (Hospitalization, Other)
  Sender: FDA-Public Use
  Company Number: SI-BAYER-2017-024322

PATIENT
  Age: 55 Year
  Sex: Female

DRUGS (4)
  1. AMANTADINE [Concomitant]
     Active Substance: AMANTADINE
  2. BACLOFEN. [Concomitant]
     Active Substance: BACLOFEN
  3. BETAFERON [Suspect]
     Active Substance: INTERFERON BETA-1B
     Indication: RELAPSING-REMITTING MULTIPLE SCLEROSIS
  4. ENALAPRIL [Concomitant]
     Active Substance: ENALAPRIL

REACTIONS (5)
  - Demyelination [None]
  - Multiple sclerosis relapse [Recovering/Resolving]
  - Multiple sclerosis [None]
  - Multiple sclerosis relapse [Recovered/Resolved]
  - Quadriparesis [None]

NARRATIVE: CASE EVENT DATE: 2009
